FAERS Safety Report 6128514-7 (Version None)
Quarter: 2009Q1

REPORT INFORMATION
  Report Type: 
  Country: None (occurrence: None)
  Receive Date: 20090319
  Receipt Date: 20090305
  Transmission Date: 20090719
  Serious: Yes (Hospitalization)
  Sender: FDA-Public Use
  Company Number: 02100-JPN-07-0033

PATIENT
  Age: 53 Year
  Sex: Female

DRUGS (40)
  1. PLETAL [Suspect]
     Indication: CEREBRAL INFARCTION
     Dosage: 100 MG, BID ORAL
     Route: 048
     Dates: start: 20061116
  2. ASPIRIN [Concomitant]
  3. ATORVASTATIN CALCIUM [Concomitant]
  4. METFORMIN HCL [Concomitant]
  5. MAGNESIUM OXIDE (MAGNESIUM OXIDE) [Concomitant]
  6. GLUCOSE (GLUCOSE) [Concomitant]
  7. POTASSIUM CHLORIDE [Concomitant]
  8. HUMAN INSULIIN (HUMAN INSULIN) [Concomitant]
  9. INSULIN LISPRO (INSULIN LISPRO) [Concomitant]
  10. SODIUM CHLORIDE [Concomitant]
  11. ZOLPIDEM TARTRATE [Concomitant]
  12. VOGLIBOSE (VOGLIBOSE) [Concomitant]
  13. CHOLINE ALFOSCERATE (CHOLINE ALFOSCERATE) [Concomitant]
  14. HYDROCHLOROTHIAZIDE [Concomitant]
  15. RAMIPRIL [Concomitant]
  16. CILNIDIPINE (CILNIDIPINE) [Concomitant]
  17. IRBESARTAN [Concomitant]
  18. CODEINE SUL TAB [Concomitant]
  19. BIOTIN (BIOTIN) [Concomitant]
  20. CYANOCOBALAMIN [Concomitant]
  21. DEXPANTHENOL (DEXPANTHENOL) [Concomitant]
  22. NICOTINAMIDE [Concomitant]
  23. PYRIDOXINE HYDROCHLORIDE (PYRIDOXINE HYDROCHLORIDE) [Concomitant]
  24. RIBOFLAVIN SODIUM PHOSPHATE (RIBOFLAVIN SODIUM PHOSPHATE) [Concomitant]
  25. THIAMINE HCL [Concomitant]
  26. DOMPERIDONE (DOMPERIDONE) [Concomitant]
  27. AMMONIUM CHLORIDE (AMMONIUM CHLORIDE) [Concomitant]
  28. CHLORPHENIRAMINE MALEATE (CHLORPHENIRAMINE MALEATE) [Concomitant]
  29. DIHYDROCODEINE TARTRATE (DIHYDROCODEINE TARTRATE) [Concomitant]
  30. METHYLPHEDRINE HYDROCHLORIDE (METHYLPHEDRINE HYDROCHLORIDE) [Concomitant]
  31. PAROXETINE HCL [Concomitant]
  32. CLONAZEPAM [Concomitant]
  33. AMLODIPINE BESYLATE [Concomitant]
  34. BENZYDAMINE HYDROCHLORIDE (BENZYDAMINE HYDROCHLORIDE) [Concomitant]
  35. DISTILLED WATER (WATER FOR INJECTION) [Concomitant]
  36. GLIMEPIRIDE [Concomitant]
  37. LEVODROPROPIZINE (LEVODROPROPIZINE) [Concomitant]
  38. ROSIGLITAZINE MALEATE (ROSIGLITIZINE MALEATE) [Concomitant]
  39. INDAPAMIDE [Concomitant]
  40. SODIUM CHLORIDE [Concomitant]

REACTIONS (3)
  - CONDITION AGGRAVATED [None]
  - DEPRESSION [None]
  - INSOMNIA [None]
